FAERS Safety Report 13711492 (Version 1)
Quarter: 2017Q3

REPORT INFORMATION
  Report Type: Spontaneous
  Country: FR (occurrence: FR)
  Receive Date: 20170703
  Receipt Date: 20170703
  Transmission Date: 20171127
  Serious: Yes (Other)
  Sender: FDA-Public Use
  Company Number: FR-BAYER-2017-126092

PATIENT
  Age: 24 Year
  Sex: Female

DRUGS (1)
  1. MIRENA [Suspect]
     Active Substance: LEVONORGESTREL
     Indication: PRODUCT USED FOR UNKNOWN INDICATION
     Dosage: 20 MCG/24HR, CONT
     Route: 015

REACTIONS (5)
  - Abscess [Recovered/Resolved]
  - Pain [Recovered/Resolved]
  - Exercise lack of [Recovered/Resolved]
  - Peritonitis [Recovered/Resolved]
  - Salpingitis [Recovered/Resolved]

NARRATIVE: CASE EVENT DATE: 2008
